FAERS Safety Report 24279110 (Version 1)
Quarter: 2024Q3

REPORT INFORMATION
  Report Type: Report from Study
  Country: US (occurrence: US)
  Receive Date: 20240903
  Receipt Date: 20240903
  Transmission Date: 20241017
  Serious: Yes (Hospitalization)
  Sender: OTSUKA
  Company Number: US-OTSUKA-2024_003044

PATIENT
  Age: 76 Year
  Sex: Female

DRUGS (1)
  1. CEDAZURIDINE\DECITABINE [Suspect]
     Active Substance: CEDAZURIDINE\DECITABINE
     Indication: Myelodysplastic syndrome
     Dosage: 1 DF (35 MG DECITABINE AND 100 MG CEDAZURIDINE), QOD (FOR 3 DAYS) OF EVERY 28 DAYS CYCLE
     Route: 048
     Dates: start: 202401

REACTIONS (2)
  - Transfusion [Unknown]
  - Inappropriate schedule of product administration [Unknown]

NARRATIVE: CASE EVENT DATE: 20240101
